FAERS Safety Report 9134496 (Version 1)
Quarter: 2013Q1

REPORT INFORMATION
  Report Type: Spontaneous
  Country: US (occurrence: US)
  Receive Date: 20130304
  Receipt Date: 20130304
  Transmission Date: 20140127
  Serious: No
  Sender: FDA-Public Use
  Company Number: US-ENDO PHARMACEUTICALS INC.-VALS20100152

PATIENT
  Age: 64 Year
  Sex: Male

DRUGS (1)
  1. VALSTAR [Suspect]
     Indication: BLADDER CANCER
     Route: 043
     Dates: start: 20101209

REACTIONS (6)
  - Rhinorrhoea [Recovered/Resolved]
  - Sneezing [Recovered/Resolved]
  - Dyspepsia [Recovered/Resolved]
  - Lethargy [Recovered/Resolved]
  - Dysuria [Recovered/Resolved]
  - Dizziness [Recovered/Resolved]
